FAERS Safety Report 5608904-9 (Version None)
Quarter: 2008Q1

REPORT INFORMATION
  Report Type: 
  Country: None (occurrence: None)
  Receive Date: 20080131
  Receipt Date: 20080122
  Transmission Date: 20080703
  Serious: Yes (Hospitalization)
  Sender: FDA-Public Use
  Company Number: PHHO2005TW19929

PATIENT
  Age: 71 Year
  Sex: Female
  Weight: 61 kg

DRUGS (9)
  1. SIMETHICONE [Concomitant]
  2. MAGNESIUM OXIDE [Concomitant]
     Indication: CONSTIPATION
  3. PANTOLOC [Concomitant]
     Indication: GASTRIC ULCER
  4. METOCLOPRAMIDE [Concomitant]
     Indication: GASTRIC ULCER
  5. ISRADIPINE [Concomitant]
     Indication: HYPERTENSION
  6. FENOFIBRATE [Concomitant]
     Indication: HYPERLIPIDAEMIA
  7. INSULIN [Concomitant]
  8. PRAVASTATIN [Concomitant]
     Indication: HYPERLIPIDAEMIA
  9. ZELMAC [Suspect]
     Indication: IRRITABLE BOWEL SYNDROME
     Dosage: 6 MG, BID
     Route: 048
     Dates: start: 20051207, end: 20051219

REACTIONS (7)
  - APHASIA [None]
  - CEREBROVASCULAR ACCIDENT [None]
  - HYPERGLYCAEMIA [None]
  - HYPEROSMOLAR STATE [None]
  - MONOPLEGIA [None]
  - MUSCULAR WEAKNESS [None]
  - MUTISM [None]
